FAERS Safety Report 16884848 (Version 1)
Quarter: 2019Q4

REPORT INFORMATION
  Report Type: Spontaneous
  Country: DE (occurrence: DE)
  Receive Date: 20191004
  Receipt Date: 20191004
  Transmission Date: 20200122
  Serious: Yes (Disabling)
  Sender: FDA-Public Use
  Company Number: DE-LEO PHARMA-323866

PATIENT
  Age: 78 Year
  Sex: Female
  Weight: 52.5 kg

DRUGS (4)
  1. VOTUM [Concomitant]
     Indication: HYPERTENSION
     Route: 048
     Dates: start: 2015
  2. ASPIRIN. [Concomitant]
     Active Substance: ASPIRIN
     Indication: ANTICOAGULANT THERAPY
     Route: 048
     Dates: start: 2000
  3. BELOC ZOC [Concomitant]
     Indication: HYPERTENSION
     Route: 048
     Dates: start: 2000
  4. PICATO [Suspect]
     Active Substance: INGENOL MEBUTATE
     Indication: ACTINIC KERATOSIS
     Dosage: 3 CONSECUTIVE DAYS
     Route: 061
     Dates: start: 20190603, end: 20190605

REACTIONS (3)
  - Scab [Recovering/Resolving]
  - Inflammation [Recovering/Resolving]
  - Alopecia [Recovering/Resolving]

NARRATIVE: CASE EVENT DATE: 20190624
